FAERS Safety Report 19405363 (Version 1)
Quarter: 2021Q2

REPORT INFORMATION
  Report Type: Spontaneous
  Country: US (occurrence: US)
  Receive Date: 20210611
  Receipt Date: 20210611
  Transmission Date: 20210717
  Serious: Yes (Other)
  Sender: FDA-Public Use
  Company Number: US-MACLEODS PHARMACEUTICALS US LTD-MAC2021031404

PATIENT

DRUGS (2)
  1. ACYCLOVIR. [Suspect]
     Active Substance: ACYCLOVIR
     Indication: VARICELLA ZOSTER VIRUS INFECTION
  2. ACYCLOVIR. [Suspect]
     Active Substance: ACYCLOVIR
     Indication: DERMATITIS
     Dosage: 1400 MILLIGRAM, QD, (SEVEN 200?MG DOSES)
     Route: 048

REACTIONS (2)
  - Neurotoxicity [Recovered/Resolved]
  - CSF protein increased [Unknown]
